FAERS Safety Report 7487103-2 (Version None)
Quarter: 2011Q2

REPORT INFORMATION
  Report Type: 
  Country: None (occurrence: None)
  Receive Date: 20110510
  Receipt Date: 20110426
  Transmission Date: 20111010
  Serious: Yes (Other)
  Sender: FDA-Public Use
  Company Number: 031780

PATIENT
  Sex: Female
  Weight: 127 kg

DRUGS (4)
  1. METHOTREXATE [Concomitant]
  2. PREDNISONE [Concomitant]
  3. CIMZIA [Suspect]
     Indication: RHEUMATOID ARTHRITIS
     Dosage: (400 MG 1X/2 WEEKS, 400 MG EVERY TWO WEEKS, 3 TIMES SUBCUTANEOUS), (200 MG 1X/2 WEEKS SUBCUTANEOUS)
     Route: 058
     Dates: start: 20110408
  4. CIMZIA [Suspect]
     Indication: RHEUMATOID ARTHRITIS
     Dosage: (400 MG 1X/2 WEEKS, 400 MG EVERY TWO WEEKS, 3 TIMES SUBCUTANEOUS), (200 MG 1X/2 WEEKS SUBCUTANEOUS)
     Route: 058
     Dates: start: 20110301, end: 20110401

REACTIONS (3)
  - RASH [None]
  - PRURITUS [None]
  - NO THERAPEUTIC RESPONSE [None]
